FAERS Safety Report 10201762 (Version 1)
Quarter: 2014Q2

REPORT INFORMATION
  Report Type: Spontaneous
  Country: US (occurrence: US)
  Receive Date: 20140528
  Receipt Date: 20140528
  Transmission Date: 20141212
  Serious: No
  Sender: FDA-Public Use
  Company Number: US-BRISTOL-MYERS SQUIBB COMPANY-19088376

PATIENT
  Age: 65 Year
  Sex: Female

DRUGS (2)
  1. METFORMIN HCL [Suspect]
  2. VICTOZA [Suspect]

REACTIONS (7)
  - Nausea [Unknown]
  - Confusional state [Unknown]
  - Neck pain [Unknown]
  - Diarrhoea [Unknown]
  - Vomiting [Unknown]
  - Urine output decreased [Unknown]
  - Hypoglycaemia [Unknown]
